FAERS Safety Report 17455906 (Version 1)
Quarter: 2020Q1

REPORT INFORMATION
  Report Type: Spontaneous
  Country: US (occurrence: US)
  Receive Date: 20200225
  Receipt Date: 20200225
  Transmission Date: 20200409
  Serious: Yes (Other)
  Sender: FDA-Public Use
  Company Number: NVSC2020US047415

PATIENT
  Sex: Female
  Weight: 65.8 kg

DRUGS (8)
  1. TIMOLOL MALEATE. [Suspect]
     Active Substance: TIMOLOL MALEATE
     Indication: GLAUCOMA
     Dosage: 1 GTT, BID (ALSO REPORTED AS 0.25 %)
     Route: 065
     Dates: start: 20191209, end: 20191209
  2. POTASSIUM GLUCONATE [Concomitant]
     Active Substance: POTASSIUM GLUCONATE
     Indication: SUPPLEMENTATION THERAPY
     Dosage: 550 MG
     Route: 065
  3. ASPIRIN. [Concomitant]
     Active Substance: ASPIRIN
     Indication: PRODUCT USED FOR UNKNOWN INDICATION
     Dosage: 81 MG
     Route: 065
  4. LUTEIN [Concomitant]
     Active Substance: LUTEIN
     Indication: SUPPLEMENTATION THERAPY
     Dosage: 20 MG
     Route: 065
  5. TIMOLOL MALEATE. [Suspect]
     Active Substance: TIMOLOL MALEATE
     Dosage: 1 GTT, BID
     Route: 065
  6. LEVOTHYROXINE. [Concomitant]
     Active Substance: LEVOTHYROXINE
     Indication: PRODUCT USED FOR UNKNOWN INDICATION
     Dosage: UNK
     Route: 065
  7. METFORMIN [Concomitant]
     Active Substance: METFORMIN HYDROCHLORIDE
     Indication: PRODUCT USED FOR UNKNOWN INDICATION
     Dosage: UNK
     Route: 065
  8. ROSUVASTATIN CALCIUM. [Concomitant]
     Active Substance: ROSUVASTATIN CALCIUM
     Indication: PRODUCT USED FOR UNKNOWN INDICATION
     Dosage: UNK
     Route: 065

REACTIONS (13)
  - Eye inflammation [Not Recovered/Not Resolved]
  - Choking [Unknown]
  - Upper-airway cough syndrome [Recovered/Resolved]
  - Product dose omission [Unknown]
  - Eyelids pruritus [Not Recovered/Not Resolved]
  - Dyspnoea [Unknown]
  - Swelling of eyelid [Recovering/Resolving]
  - Eyelid contusion [Unknown]
  - Dysphagia [Unknown]
  - Blepharitis [Unknown]
  - Discomfort [Unknown]
  - Eye pruritus [Not Recovered/Not Resolved]
  - Product substitution issue [Unknown]
